FAERS Safety Report 10047559 (Version 1)
Quarter: 2014Q1

REPORT INFORMATION
  Report Type: Spontaneous
  Country: TW (occurrence: None)
  Receive Date: 20140327
  Receipt Date: 20140327
  Transmission Date: 20141002
  Serious: Yes (Other)
  Sender: FDA-Public Use
  Company Number: 2014P1002414

PATIENT
  Age: 84 Year
  Sex: Male

DRUGS (1)
  1. CEFUROXIME [Suspect]

REACTIONS (2)
  - Drug eruption [None]
  - Dermatitis bullous [None]
